FAERS Safety Report 11651994 (Version 1)
Quarter: 2015Q4

REPORT INFORMATION
  Report Type: Report from Study
  Country: US (occurrence: US)
  Receive Date: 20151022
  Receipt Date: 20151022
  Transmission Date: 20160304
  Serious: Yes (Hospitalization, Other)
  Sender: FDA-Public Use
  Company Number: US-BIOGENIDEC-2015BI141260

PATIENT
  Age: 72 Year
  Sex: Female

DRUGS (1)
  1. AVONEX [Suspect]
     Active Substance: INTERFERON BETA-1A
     Indication: MULTIPLE SCLEROSIS
     Route: 030
     Dates: start: 20110225

REACTIONS (2)
  - Gallbladder cancer [Not Recovered/Not Resolved]
  - Gallbladder operation [Not Recovered/Not Resolved]

NARRATIVE: CASE EVENT DATE: 20151006
